FAERS Safety Report 9612499 (Version 2)
Quarter: 2013Q4

REPORT INFORMATION
  Report Type: Report from Study
  Country: DE (occurrence: DE)
  Receive Date: 20131010
  Receipt Date: 20131025
  Transmission Date: 20140711
  Serious: Yes (Hospitalization)
  Sender: FDA-Public Use
  Company Number: DE-IPSEN BIOPHARMACEUTICALS, INC.-2013-4387

PATIENT
  Age: 48 Year
  Sex: Male
  Weight: 98 kg

DRUGS (1)
  1. DYSPORT [Suspect]
     Indication: MUSCLE SPASTICITY
     Dosage: 720 IU
     Route: 030
     Dates: start: 20101129

REACTIONS (2)
  - Spinal fracture [Recovered/Resolved]
  - Fall [Recovered/Resolved with Sequelae]
